FAERS Safety Report 4335268-3 (Version None)
Quarter: 2004Q2

REPORT INFORMATION
  Report Type: 
  Country: None (occurrence: None)
  Receive Date: 20040406
  Receipt Date: 20040224
  Transmission Date: 20050107
  Serious: Yes (Other)
  Sender: FDA-Public Use
  Company Number: 359997

PATIENT
  Sex: Male

DRUGS (1)
  1. FUZEON [Suspect]
     Dates: start: 20040210

REACTIONS (1)
  - PAIN IN EXTREMITY [None]
